FAERS Safety Report 6013726-3 (Version None)
Quarter: 2008Q4

REPORT INFORMATION
  Report Type: 
  Country: None (occurrence: None)
  Receive Date: 20081219
  Receipt Date: 20081219
  Transmission Date: 20090506
  Serious: Yes (Death)
  Sender: FDA-Public Use
  Company Number: A0761123A

PATIENT
  Age: 72 Year
  Sex: Female
  Weight: 54 kg

DRUGS (1)
  1. SERETIDE [Suspect]
     Indication: PULMONARY FIBROSIS
     Route: 055
     Dates: start: 20080601, end: 20081213

REACTIONS (1)
  - CARDIAC ARREST [None]
